FAERS Safety Report 14730022 (Version 1)
Quarter: 2018Q2

REPORT INFORMATION
  Report Type: Spontaneous
  Country: NL (occurrence: NL)
  Receive Date: 20180406
  Receipt Date: 20180406
  Transmission Date: 20180711
  Serious: Yes (Hospitalization, Other)
  Sender: FDA-Public Use
  Company Number: NL-ALLERGAN-1816995US

PATIENT
  Age: 67 Year
  Sex: Female
  Weight: 75 kg

DRUGS (4)
  1. MERCAPTOPURINE. [Suspect]
     Active Substance: MERCAPTOPURINE
     Indication: IMMUNOSUPPRESSION
     Dosage: 100 MG - 1.3 MG/KG DAILY
     Route: 065
  2. MESALAZINE UNK [Suspect]
     Active Substance: MESALAMINE
     Indication: COLITIS ULCERATIVE
     Route: 065
  3. MERCAPTOPURINE. [Suspect]
     Active Substance: MERCAPTOPURINE
     Indication: COLITIS ULCERATIVE
     Dosage: 50 MG, QD
     Route: 065
  4. ALLOPURINOL. [Suspect]
     Active Substance: ALLOPURINOL
     Indication: COLITIS ULCERATIVE
     Dosage: 100 MG, QD
     Route: 065

REACTIONS (5)
  - Thrombocytopenia [Not Recovered/Not Resolved]
  - Bone marrow failure [Unknown]
  - Anaemia [Recovering/Resolving]
  - Leukopenia [Recovered/Resolved]
  - Pyrexia [Unknown]
